FAERS Safety Report 11701683 (Version 1)
Quarter: 2015Q4

REPORT INFORMATION
  Report Type: Spontaneous
  Country: CH (occurrence: CH)
  Receive Date: 20151105
  Receipt Date: 20151105
  Transmission Date: 20160304
  Serious: Yes (Other)
  Sender: FDA-Public Use
  Company Number: PHHY2015CH143672

PATIENT
  Age: 18 Year
  Sex: Female

DRUGS (2)
  1. EXJADE [Suspect]
     Active Substance: DEFERASIROX
     Dosage: 750 MG, QD
     Route: 065
  2. EXJADE [Suspect]
     Active Substance: DEFERASIROX
     Indication: SICKLE CELL ANAEMIA
     Dosage: 1000 MG, QD
     Route: 065

REACTIONS (5)
  - Hearing impaired [Unknown]
  - Nausea [Unknown]
  - Maternal exposure during pregnancy [Unknown]
  - Ectopic pregnancy [Unknown]
  - Vomiting [Unknown]
